FAERS Safety Report 17580907 (Version 1)
Quarter: 2020Q1

REPORT INFORMATION
  Report Type: Spontaneous
  Country: ES (occurrence: ES)
  Receive Date: 20200325
  Receipt Date: 20200325
  Transmission Date: 20200409
  Serious: Yes (Life-Threatening, Hospitalization)
  Sender: FDA-Public Use
  Company Number: ES-TEVA-2020-ES-1209067

PATIENT
  Age: 66 Year
  Sex: Female
  Weight: 74 kg

DRUGS (2)
  1. OXALIPLATINO TEVA 200 MG/40 ML [Suspect]
     Active Substance: OXALIPLATIN
     Indication: COLORECTAL CANCER
     Dosage: 116 MG (85 MG / M2) W / 14 DAYS
     Route: 042
     Dates: start: 20200204, end: 20200218
  2. FOLINATO CALCICO TEVA 300 MG 10 MG/ML [Concomitant]
     Indication: COLORECTAL CANCER
     Dosage: 547 MG
     Route: 042
     Dates: start: 20200204, end: 20200218

REACTIONS (4)
  - Bronchospasm [Recovered/Resolved]
  - Hypotension [Recovered/Resolved]
  - Depressed level of consciousness [Recovered/Resolved]
  - Anaphylactic reaction [Recovered/Resolved]

NARRATIVE: CASE EVENT DATE: 20200218
